FAERS Safety Report 9710566 (Version 1)
Quarter: 2013Q4

REPORT INFORMATION
  Report Type: Spontaneous
  Country: US (occurrence: US)
  Receive Date: 20131126
  Receipt Date: 20131126
  Transmission Date: 20140711
  Serious: No
  Sender: FDA-Public Use
  Company Number: US-BRISTOL-MYERS SQUIBB COMPANY-18900779

PATIENT
  Age: 56 Year
  Sex: Female
  Weight: 72.56 kg

DRUGS (2)
  1. BYETTA PEN DISPOSABLE [Suspect]
     Dosage: SOME TIMES 2008 OR 2009
     Dates: start: 2005
  2. METFORMIN HCL [Suspect]
     Route: 048

REACTIONS (1)
  - Blood glucose decreased [Recovered/Resolved]
